FAERS Safety Report 8380913-9 (Version None)
Quarter: 2012Q2

REPORT INFORMATION
  Report Type: 
  Country: None (occurrence: None)
  Receive Date: 20120523
  Receipt Date: 20120515
  Transmission Date: 20120825
  Serious: Yes (Hospitalization, Disabling, Other)
  Sender: FDA-Public Use
  Company Number: US-MERCK-1111USA03161

PATIENT
  Age: 81 Year
  Sex: Female

DRUGS (1)
  1. FOSAMAX [Suspect]
     Indication: OSTEOPENIA
     Route: 048
     Dates: start: 20010101, end: 20070921

REACTIONS (8)
  - GASTROOESOPHAGEAL REFLUX DISEASE [None]
  - LUMBAR SPINAL STENOSIS [None]
  - OSTEOPOROSIS [None]
  - THYMUS DISORDER [None]
  - POST PROCEDURAL HAEMORRHAGE [None]
  - STRESS FRACTURE [None]
  - FEMUR FRACTURE [None]
  - UTERINE DISORDER [None]
